FAERS Safety Report 23179911 (Version 1)
Quarter: 2023Q4

REPORT INFORMATION
  Report Type: Spontaneous
  Country: US (occurrence: None)
  Receive Date: 20231114
  Receipt Date: 20231114
  Transmission Date: 20240110
  Serious: Yes (Death, Other)
  Sender: FDA-Public Use
  Company Number: US-ENDO-CASE-0041619

PATIENT
  Sex: Female

DRUGS (16)
  1. ACETAMINOPHEN\HYDROCODONE BITARTRATE [Suspect]
     Active Substance: ACETAMINOPHEN\HYDROCODONE BITARTRATE
  2. ENDODAN [Suspect]
     Active Substance: ASPIRIN\OXYCODONE HYDROCHLORIDE
  3. PERCOCET [Suspect]
     Active Substance: ACETAMINOPHEN\OXYCODONE HYDROCHLORIDE
  4. MORPHINE SULFATE [Suspect]
     Active Substance: MORPHINE SULFATE
  5. TRAMADOL HYDROCHLORIDE [Suspect]
     Active Substance: TRAMADOL HYDROCHLORIDE
  6. TRAMADOL HYDROCHLORIDE [Suspect]
     Active Substance: TRAMADOL HYDROCHLORIDE
  7. ACETAMINOPHEN\OXYCODONE HYDROCHLORIDE [Suspect]
     Active Substance: ACETAMINOPHEN\OXYCODONE HYDROCHLORIDE
  8. DEPODUR [Suspect]
     Active Substance: MORPHINE SULFATE
  9. ACETAMINOPHEN AND CODEINE [Suspect]
     Active Substance: ACETAMINOPHEN\CODEINE PHOSPHATE
  10. HYDROCODONE BITARTRATE\IBUPROFEN [Suspect]
     Active Substance: HYDROCODONE BITARTRATE\IBUPROFEN
  11. ABSTRAL [Suspect]
     Active Substance: FENTANYL CITRATE
  12. HEROIN [Suspect]
     Active Substance: DIAMORPHINE
  13. OPANA [Suspect]
     Active Substance: OXYMORPHONE HYDROCHLORIDE
  14. FENTANYL CITRATE [Suspect]
     Active Substance: FENTANYL CITRATE
  15. MORPHINE SULFATE [Suspect]
     Active Substance: MORPHINE SULFATE
  16. PHENYLHISTINE DH [Suspect]
     Active Substance: CHLORPHENIRAMINE MALEATE\CODEINE PHOSPHATE\PSEUDOEPHEDRINE HYDROCHLORIDE

REACTIONS (9)
  - Death [Fatal]
  - Overdose [Unknown]
  - Dependence [Unknown]
  - Immune system disorder [Unknown]
  - Hepatic steatosis [Unknown]
  - Limb discomfort [Unknown]
  - Nerve injury [Unknown]
  - Post-traumatic stress disorder [Unknown]
  - Hepatitis C [Unknown]
